FAERS Safety Report 10874224 (Version 2)
Quarter: 2015Q1

REPORT INFORMATION
  Report Type: Spontaneous
  Country: MX (occurrence: MX)
  Receive Date: 20150227
  Receipt Date: 20150303
  Transmission Date: 20150721
  Serious: Yes (Death)
  Sender: FDA-Public Use
  Company Number: MX-MUNDIPHARMA DS AND PHARMACOVIGILANCE-GBR-2015-0025905

PATIENT
  Age: 93 Year
  Sex: Male

DRUGS (1)
  1. SOLORO7 [Suspect]
     Active Substance: BUPRENORPHINE
     Indication: PAIN
     Dosage: 5 MG, UNK
     Route: 062

REACTIONS (1)
  - Death [Fatal]

NARRATIVE: CASE EVENT DATE: 20141205
